FAERS Safety Report 5959405-X (Version None)
Quarter: 2008Q4

REPORT INFORMATION
  Report Type: 
  Country: None (occurrence: None)
  Receive Date: 20081120
  Receipt Date: 20080828
  Transmission Date: 20090506
  Serious: No
  Sender: FDA-Public Use
  Company Number: A0744925A

PATIENT
  Age: 50 Year
  Sex: Female

DRUGS (2)
  1. VERAMYST [Suspect]
     Dosage: 1SPR TWICE PER DAY
     Route: 045
     Dates: start: 20080819, end: 20080824
  2. AUGMENTIN '125' [Concomitant]

REACTIONS (1)
  - EYE PAIN [None]
